FAERS Safety Report 15900217 (Version 1)
Quarter: 2019Q1

REPORT INFORMATION
  Report Type: Spontaneous
  Country: US (occurrence: US)
  Receive Date: 20190131
  Receipt Date: 20190131
  Transmission Date: 20190417
  Serious: Yes (Other)
  Sender: FDA-Public Use
  Company Number: None

PATIENT
  Age: 39 Year
  Sex: Female
  Weight: 63 kg

DRUGS (6)
  1. SUMATRIPTAN. [Concomitant]
     Active Substance: SUMATRIPTAN
  2. AIMOVIG [Suspect]
     Active Substance: ERENUMAB-AOOE
     Indication: MIGRAINE PROPHYLAXIS
     Dosage: ?          QUANTITY:2 INJECTION(S);OTHER FREQUENCY:EVERY 28 DAYS;?
     Route: 058
     Dates: start: 20180606, end: 20181219
  3. HUMATROPE [Concomitant]
     Active Substance: SOMATROPIN
  4. BULTAP [Concomitant]
  5. HYDROCORTISONE. [Concomitant]
     Active Substance: HYDROCORTISONE
  6. FLUDROCORTISONE [Concomitant]
     Active Substance: FLUDROCORTISONE

REACTIONS (30)
  - Dizziness [None]
  - Toothache [None]
  - Spinal cord disorder [None]
  - Palpitations [None]
  - Restless legs syndrome [None]
  - Weight increased [None]
  - Contusion [None]
  - Headache [None]
  - Myalgia [None]
  - Temperature intolerance [None]
  - Heart rate increased [None]
  - Pollakiuria [None]
  - Abdominal pain upper [None]
  - Muscle twitching [None]
  - Arthralgia [None]
  - Nausea [None]
  - Abdominal distension [None]
  - Neck pain [None]
  - Fatigue [None]
  - Flatulence [None]
  - Dyspepsia [None]
  - Pain of skin [None]
  - Thirst [None]
  - Vertigo [None]
  - Vestibular migraine [None]
  - Dyspnoea [None]
  - Malaise [None]
  - Presyncope [None]
  - Hot flush [None]
  - Therapeutic response unexpected [None]

NARRATIVE: CASE EVENT DATE: 20181204
